FAERS Safety Report 4997739-6 (Version None)
Quarter: 2006Q2

REPORT INFORMATION
  Report Type: 
  Country: None (occurrence: None)
  Receive Date: 20060510
  Receipt Date: 20060428
  Transmission Date: 20061013
  Serious: Yes (Life-Threatening, Other)
  Sender: FDA-Public Use
  Company Number: DK-JNJFOC-20060401132

PATIENT
  Age: 42 Year
  Sex: Female
  Weight: 65 kg

DRUGS (15)
  1. REMICADE [Suspect]
     Indication: RHEUMATOID ARTHRITIS
     Route: 042
  2. MAREVAN [Interacting]
     Route: 065
  3. MAREVAN [Interacting]
     Route: 065
  4. MAREVAN [Interacting]
     Route: 065
  5. MAREVAN [Interacting]
     Route: 065
  6. MAREVAN [Interacting]
     Route: 065
  7. MAREVAN [Interacting]
     Route: 065
  8. MAREVAN [Interacting]
     Route: 065
  9. MAREVAN [Interacting]
     Indication: AORTIC VALVE REPLACEMENT
     Route: 065
  10. DOLOXENE [Concomitant]
     Route: 048
  11. FOLIMET [Concomitant]
     Route: 048
  12. METHOTREXATE [Concomitant]
     Indication: ARTHRITIS
     Route: 048
  13. ACETAMINOPHEN [Concomitant]
     Indication: PAIN
     Dosage: 1-2 TABLETS 3-4 TIMES A DAY
     Route: 048
  14. SERETIDE [Concomitant]
     Route: 055
  15. SERETIDE [Concomitant]
     Indication: ASTHMA
     Route: 055

REACTIONS (3)
  - AORTIC VALVE REPLACEMENT [None]
  - DRUG INTERACTION [None]
  - INTERNATIONAL NORMALISED RATIO FLUCTUATION [None]
